FAERS Safety Report 4602063-7 (Version None)
Quarter: 2005Q1

REPORT INFORMATION
  Report Type: 
  Country: None (occurrence: None)
  Receive Date: 20050131
  Receipt Date: 20041213
  Transmission Date: 20050727
  Serious: No
  Sender: FDA-Public Use
  Company Number: 200418847US

PATIENT
  Sex: Female

DRUGS (4)
  1. KETEK [Suspect]
     Indication: SINUSITIS
     Dosage: 400 MG BID PO
     Route: 048
     Dates: start: 20041007, end: 20041012
  2. CHLORPHENARAMINE W/PSEUDOEPHEDRINE [Concomitant]
  3. PHENYLEPHRINE HYDROCHLORIDE [Concomitant]
  4. HYDROCODONE BITARTRATE (NOVAHISTINE DH) [Concomitant]

REACTIONS (2)
  - MYALGIA [None]
  - PAIN IN EXTREMITY [None]
